FAERS Safety Report 13951352 (Version 1)
Quarter: 2017Q3

REPORT INFORMATION
  Report Type: Spontaneous
  Country: US (occurrence: US)
  Receive Date: 20170908
  Receipt Date: 20170908
  Transmission Date: 20171128
  Serious: No
  Sender: FDA-Public Use
  Company Number: US-JAZZ-2017-US-009738

PATIENT
  Sex: Female

DRUGS (27)
  1. XYREM [Suspect]
     Active Substance: SODIUM OXYBATE
     Indication: CATAPLEXY
     Dosage: DOSE ADJUSTMENT
     Route: 048
     Dates: start: 201206, end: 201411
  2. OMEGA 3 FISH OIL                   /01334101/ [Concomitant]
     Active Substance: FISH OIL
  3. XIFAXAN [Concomitant]
     Active Substance: RIFAXIMIN
  4. ARMOUR THYROID [Concomitant]
     Active Substance: THYROID, PORCINE
  5. LEVOXYL [Concomitant]
     Active Substance: LEVOTHYROXINE SODIUM
  6. PENICILLIN VK [Concomitant]
     Active Substance: PENICILLIN V POTASSIUM
  7. EFFEXOR [Suspect]
     Active Substance: VENLAFAXINE HYDROCHLORIDE
     Indication: PRODUCT USED FOR UNKNOWN INDICATION
     Dosage: UNK
     Dates: start: 20151027, end: 201604
  8. TYLENOL [Concomitant]
     Active Substance: ACETAMINOPHEN
  9. TRIAMCINOLONE [Concomitant]
     Active Substance: TRIAMCINOLONE
  10. ZOVIRAX [Concomitant]
     Active Substance: ACYCLOVIR
  11. XYREM [Suspect]
     Active Substance: SODIUM OXYBATE
     Indication: NARCOLEPSY
     Dosage: 2.25G, BID
     Route: 048
     Dates: start: 201205, end: 201206
  12. XYREM [Suspect]
     Active Substance: SODIUM OXYBATE
     Dosage: 3.25 G, BID
     Route: 048
     Dates: start: 201411, end: 2017
  13. PRILOSEC [Concomitant]
     Active Substance: OMEPRAZOLE MAGNESIUM
  14. GUANFACINE. [Concomitant]
     Active Substance: GUANFACINE
  15. PERCOCET                           /00446701/ [Concomitant]
     Active Substance: ACETAMINOPHEN\OXYCODONE HYDROCHLORIDE\OXYCODONE TEREPHTHALATE
  16. VITAMIN D3 [Concomitant]
     Active Substance: CHOLECALCIFEROL
  17. PROZAC [Suspect]
     Active Substance: FLUOXETINE HYDROCHLORIDE
     Indication: PRODUCT USED FOR UNKNOWN INDICATION
  18. GLUCOSAMINE [Concomitant]
     Active Substance: GLUCOSAMINE
  19. CLONAZEPAM. [Concomitant]
     Active Substance: CLONAZEPAM
  20. OXYCODONE [Concomitant]
     Active Substance: OXYCODONE
  21. PANTOPRAZOLE [Concomitant]
     Active Substance: PANTOPRAZOLE
  22. NUVIGIL [Concomitant]
     Active Substance: ARMODAFINIL
  23. XYREM [Suspect]
     Active Substance: SODIUM OXYBATE
     Dosage: 3 G, QD
     Route: 048
     Dates: start: 2017
  24. IMODIUM A-D [Concomitant]
     Active Substance: LOPERAMIDE HYDROCHLORIDE
  25. XYREM [Suspect]
     Active Substance: SODIUM OXYBATE
     Dosage: 2.75 G, QD
     Route: 048
     Dates: start: 2017
  26. PRILOSEC [Concomitant]
     Active Substance: OMEPRAZOLE MAGNESIUM
  27. NIFEDIAC CC [Concomitant]
     Active Substance: NIFEDIPINE

REACTIONS (4)
  - Anxiety [Not Recovered/Not Resolved]
  - Hypertension [Unknown]
  - Palpitations [Unknown]
  - Drug ineffective [Not Recovered/Not Resolved]
